FAERS Safety Report 17525085 (Version 10)
Quarter: 2022Q2

REPORT INFORMATION
  Report Type: Spontaneous
  Country: GB (occurrence: GB)
  Receive Date: 20200311
  Receipt Date: 20220404
  Transmission Date: 20220721
  Serious: Yes (Hospitalization, Other)
  Sender: FDA-Public Use
  Company Number: GB-SERVIER-S20001935

PATIENT
  Age: 68 Year
  Sex: Male

DRUGS (37)
  1. IVABRADINE [Suspect]
     Active Substance: IVABRADINE
     Indication: Product used for unknown indication
     Dosage: 2.5 MG, BID
     Route: 065
  2. IVABRADINE [Suspect]
     Active Substance: IVABRADINE
     Dosage: 5 MG, QD
     Route: 065
  3. IVABRADINE [Suspect]
     Active Substance: IVABRADINE
     Dosage: 5 MG
     Route: 065
  4. SACUBITRIL [Suspect]
     Active Substance: SACUBITRIL
     Indication: Product used for unknown indication
     Dosage: 24/26 MG, BID
     Route: 065
  5. SACUBITRIL [Suspect]
     Active Substance: SACUBITRIL
     Dosage: 49/51 MG, BID
     Route: 065
  6. SACUBITRIL [Suspect]
     Active Substance: SACUBITRIL
     Dosage: 2 DF, BID
     Route: 065
  7. SACUBITRIL [Suspect]
     Active Substance: SACUBITRIL
     Dosage: 24/26 MG, BID
     Route: 065
  8. SACUBITRIL [Suspect]
     Active Substance: SACUBITRIL
     Dosage: 4 DF, QD
     Route: 065
  9. SACUBITRIL [Suspect]
     Active Substance: SACUBITRIL
     Dosage: 2 DF, QD
     Route: 065
  10. SACUBITRIL [Suspect]
     Active Substance: SACUBITRIL
     Dosage: 1 DF, BID
     Route: 065
  11. EPLERENONE [Suspect]
     Active Substance: EPLERENONE
     Indication: Product used for unknown indication
     Dosage: 25 MILLIGRAM
     Route: 065
  12. RAMIPRIL [Suspect]
     Active Substance: RAMIPRIL
     Indication: Product used for unknown indication
     Dosage: 5 MG, QD
     Route: 065
  13. RAMIPRIL [Suspect]
     Active Substance: RAMIPRIL
     Dosage: 2.5 MG
     Route: 065
  14. RAMIPRIL [Suspect]
     Active Substance: RAMIPRIL
     Dosage: 2.5 MG, BID
     Route: 065
  15. ISOSORBIDE MONONITRATE [Suspect]
     Active Substance: ISOSORBIDE MONONITRATE
     Indication: Product used for unknown indication
     Dosage: 25 MG, QD
     Route: 065
  16. VALSARTAN [Suspect]
     Active Substance: VALSARTAN
     Indication: Product used for unknown indication
     Dosage: 2 DF (24/26 MG), BID
     Route: 065
  17. VALSARTAN [Suspect]
     Active Substance: VALSARTAN
     Dosage: 2 DF (49/51 MG), BID
     Route: 065
  18. BISOPROLOL [Suspect]
     Active Substance: BISOPROLOL
     Indication: Product used for unknown indication
     Dosage: 7.5 MG
     Route: 065
  19. BISOPROLOL [Suspect]
     Active Substance: BISOPROLOL
     Dosage: 25 MG, QD
     Route: 065
  20. BISOPROLOL [Suspect]
     Active Substance: BISOPROLOL
     Dosage: 2.5 MG, BID
     Route: 065
  21. BISOPROLOL [Suspect]
     Active Substance: BISOPROLOL
     Dosage: 2.5 DF
     Route: 065
  22. BISOPROLOL [Suspect]
     Active Substance: BISOPROLOL
     Dosage: 1 DF
     Route: 065
  23. BISOPROLOL [Suspect]
     Active Substance: BISOPROLOL
     Dosage: 5 MG, QD
     Route: 065
  24. BISOPROLOL [Suspect]
     Active Substance: BISOPROLOL
     Dosage: 25 MG, QD
     Route: 065
  25. BISOPROLOL [Suspect]
     Active Substance: BISOPROLOL
     Dosage: UNK UNK, BID
     Route: 065
  26. BISOPROLOL [Suspect]
     Active Substance: BISOPROLOL
     Dosage: UNK UNK, BID
     Route: 065
  27. BISOPROLOL [Suspect]
     Active Substance: BISOPROLOL
     Dosage: UNK UNK, QD
     Route: 065
  28. BUMETANIDE [Concomitant]
     Active Substance: BUMETANIDE
     Indication: Product used for unknown indication
     Dosage: 1 DF (2/1 MG)
  29. BUMETANIDE [Concomitant]
     Active Substance: BUMETANIDE
     Dosage: 1 DF (3/2 MG)
  30. BUMETANIDE [Concomitant]
     Active Substance: BUMETANIDE
     Dosage: 3 OT, BID
     Route: 065
  31. BUMETANIDE [Concomitant]
     Active Substance: BUMETANIDE
     Dosage: 3 MG, BID
  32. BUMETANIDE [Concomitant]
     Active Substance: BUMETANIDE
     Dosage: 2.5 MG, EVERY 3 WEEKS
     Route: 065
  33. BUMETANIDE [Concomitant]
     Active Substance: BUMETANIDE
     Dosage: UNK
  34. BUMETANIDE [Concomitant]
     Active Substance: BUMETANIDE
     Dosage: 1 DF
  35. METOLAZONE [Concomitant]
     Active Substance: METOLAZONE
     Indication: Product used for unknown indication
     Dosage: 3 DF, EVERY 1 WEEK
  36. METOLAZONE [Concomitant]
     Active Substance: METOLAZONE
     Dosage: 2.5 OT, EVERY 1 WEEK
  37. METOLAZONE [Concomitant]
     Active Substance: METOLAZONE
     Dosage: 2.5 MG, EVERY 3 WEEKS

REACTIONS (8)
  - Glomerular filtration rate decreased [Unknown]
  - Oedema peripheral [Unknown]
  - Venous pressure jugular increased [Unknown]
  - Dizziness [Unknown]
  - Blood potassium increased [Unknown]
  - Sinus bradycardia [Unknown]
  - Blood pressure systolic decreased [Unknown]
  - Blood pressure decreased [Unknown]

NARRATIVE: CASE EVENT DATE: 20200101
